FAERS Safety Report 8988579 (Version 3)
Quarter: 2013Q1

REPORT INFORMATION
  Report Type: Spontaneous
  Country: JP (occurrence: JP)
  Receive Date: 20121227
  Receipt Date: 20130301
  Transmission Date: 20140127
  Serious: Yes (Other)
  Sender: FDA-Public Use
  Company Number: JP-B.I. PHARMACEUTICALS,INC./RIDGEFIELD-2012-BI-03967GD

PATIENT
  Age: 58 Year
  Sex: Male

DRUGS (3)
  1. PRADAXA [Suspect]
     Indication: ATRIAL FIBRILLATION
     Dosage: 300 MG
     Route: 048
     Dates: start: 2012
  2. BEPRIDIL HYDROCHLORIDE HYDRATE [Concomitant]
     Indication: ARRHYTHMIA
     Dates: start: 20120621
  3. FLECAINIDE ACETATE [Concomitant]
     Indication: ARRHYTHMIA
     Dates: start: 20120621

REACTIONS (3)
  - Atrial thrombosis [Unknown]
  - Activated partial thromboplastin time prolonged [Unknown]
  - Drug ineffective [Unknown]
